FAERS Safety Report 18519563 (Version 2)
Quarter: 2020Q4

REPORT INFORMATION
  Report Type: Spontaneous
  Country: FR (occurrence: FR)
  Receive Date: 20201118
  Receipt Date: 20201211
  Transmission Date: 20210114
  Serious: Yes (Hospitalization, Other)
  Sender: FDA-Public Use
  Company Number: FR-SA-2020SA327350

PATIENT

DRUGS (13)
  1. MIANSERINE [MIANSERIN HYDROCHLORIDE] [Concomitant]
     Active Substance: MIANSERIN HYDROCHLORIDE
     Dosage: 10 MG, QD
     Route: 048
     Dates: start: 20201012
  2. DAFALGAN [Concomitant]
     Active Substance: ACETAMINOPHEN
     Dosage: 1 G, Q8H
     Route: 048
     Dates: start: 20201005
  3. ELIQUIS [Concomitant]
     Active Substance: APIXABAN
     Dosage: 5 MG, QD
     Route: 048
     Dates: end: 20201005
  4. ATENOLOL. [Concomitant]
     Active Substance: ATENOLOL
     Dosage: 25 MG, QD
     Route: 048
  5. LEVOTHYROX [Concomitant]
     Active Substance: LEVOTHYROXINE
     Dosage: 37.5 MG, QD
     Route: 048
  6. LANSOPRAZOLE. [Suspect]
     Active Substance: LANSOPRAZOLE
     Indication: POST-TRAUMATIC STRESS DISORDER
     Dosage: 30 MG, QD
     Route: 048
     Dates: start: 20201005, end: 20201014
  7. ENOXAPARIN SODIUM. [Suspect]
     Active Substance: ENOXAPARIN SODIUM
     Indication: BED REST
     Dosage: 4000 IU, QD
     Route: 058
     Dates: start: 20201005, end: 20201014
  8. FUROSEMIDE. [Concomitant]
     Active Substance: FUROSEMIDE
     Dosage: 20 MG, QD
     Route: 048
     Dates: start: 20201013
  9. LEVOTHYROX [Concomitant]
     Active Substance: LEVOTHYROXINE
     Dosage: 100 MG, QD
     Route: 048
  10. CEFTRIAXONE. [Suspect]
     Active Substance: CEFTRIAXONE
     Indication: LAPAROSCOPY
     Dosage: 1 G, QD
     Route: 042
     Dates: end: 20201009
  11. SERESTA [Concomitant]
     Active Substance: OXAZEPAM
     Dosage: 10 MG, Q6H
     Route: 048
     Dates: start: 20201005
  12. ZYMAD [Concomitant]
     Active Substance: CHOLECALCIFEROL
     Dosage: 80000 INTERNATIONAL UNIT, Q2WEEKS
     Route: 048
  13. AMLODIPINE [Concomitant]
     Active Substance: AMLODIPINE BESYLATE
     Dosage: 5 MG, QD
     Route: 048

REACTIONS (1)
  - Agranulocytosis [Recovered/Resolved]

NARRATIVE: CASE EVENT DATE: 20201012
